FAERS Safety Report 5024012-2 (Version None)
Quarter: 2006Q2

REPORT INFORMATION
  Report Type: 
  Country: None (occurrence: None)
  Receive Date: 20060426
  Receipt Date: 20060327
  Transmission Date: 20061013
  Serious: Yes (Other)
  Sender: FDA-Public Use
  Company Number: 2006043202

PATIENT
  Age: 71 Year
  Sex: Female
  Weight: 50.3493 kg

DRUGS (16)
  1. LYRICA [Suspect]
     Indication: PAIN
     Dosage: ORAL
     Route: 048
     Dates: start: 20060101, end: 20060301
  2. PERCOCET [Concomitant]
  3. KLONOPIN [Concomitant]
  4. SINEQUAN [Concomitant]
  5. ASPIRIN [Concomitant]
  6. BENICAR [Concomitant]
  7. BIOTIN [Concomitant]
  8. CENTRUM SILVER (ASCORBIC ACID, CALCIUM, MINERALS NOS, RETINOL, TOCOPHE [Concomitant]
  9. CALTRATE + D (CALCIUM CARBONATE, COLECALCIFEROL) [Concomitant]
  10. ALL OTHER THERAPEUTIC PRODUCTS (ALL OTHER THERAPEUTIC PRODUCTS) [Concomitant]
  11. VITAMIN C (VITAMIN C) [Concomitant]
  12. SYNTHROID [Concomitant]
  13. ACTINAL (CYPROHEPTADINE HYDROCHLORIDE) [Concomitant]
  14. AMBIEN [Concomitant]
  15. PREMPRO [Concomitant]
  16. METAMUCIL-2 [Concomitant]

REACTIONS (1)
  - WEIGHT INCREASED [None]
